FAERS Safety Report 9285511 (Version 1)
Quarter: 2013Q2

REPORT INFORMATION
  Report Type: Spontaneous
  Country: US (occurrence: US)
  Receive Date: 20130513
  Receipt Date: 20130513
  Transmission Date: 20140414
  Serious: No
  Sender: FDA-Public Use
  Company Number: US-PFIZER INC-2013142872

PATIENT
  Age: 44 Year
  Sex: Female
  Weight: 57.14 kg

DRUGS (2)
  1. DIFLUCAN [Suspect]
     Indication: CANDIDA INFECTION
     Dosage: 150 MG, WEEKLY
     Route: 048
     Dates: start: 2013, end: 2013
  2. DIFLUCAN [Suspect]
     Dosage: 150 MG, WEEKLY
     Route: 048
     Dates: start: 20130506, end: 20130507

REACTIONS (12)
  - Urticaria [Not Recovered/Not Resolved]
  - Urticaria [Not Recovered/Not Resolved]
  - Skin lesion [Not Recovered/Not Resolved]
  - Vaginal lesion [Not Recovered/Not Resolved]
  - Oedema peripheral [Not Recovered/Not Resolved]
  - Vulvovaginal swelling [Not Recovered/Not Resolved]
  - Urticaria [Not Recovered/Not Resolved]
  - Vulvovaginal pruritus [Not Recovered/Not Resolved]
  - Feeling abnormal [Not Recovered/Not Resolved]
  - Tongue disorder [Not Recovered/Not Resolved]
  - Urticaria [Not Recovered/Not Resolved]
  - Drug hypersensitivity [Not Recovered/Not Resolved]
